FAERS Safety Report 7586514-4 (Version None)
Quarter: 2011Q3

REPORT INFORMATION
  Report Type: 
  Country: None (occurrence: None)
  Receive Date: 20110701
  Receipt Date: 20110623
  Transmission Date: 20111222
  Serious: Yes (Death, Hospitalization)
  Sender: FDA-Public Use
  Company Number: IT-ROCHE-784495

PATIENT
  Sex: Male

DRUGS (3)
  1. SEROQUEL [Concomitant]
     Route: 048
     Dates: start: 20110401, end: 20110502
  2. AMARYL [Concomitant]
  3. CLONAZEPAM [Suspect]
     Dosage: AS NECESSARY
     Route: 048
     Dates: start: 20110417, end: 20110502

REACTIONS (4)
  - CARDIO-RESPIRATORY ARREST [None]
  - DYSPNOEA [None]
  - PYREXIA [None]
  - PRESYNCOPE [None]
